FAERS Safety Report 9885205 (Version 1)
Quarter: 2014Q1

REPORT INFORMATION
  Report Type: Spontaneous
  Country: US (occurrence: US)
  Receive Date: 20140210
  Receipt Date: 20140210
  Transmission Date: 20141002
  Serious: No
  Sender: FDA-Public Use
  Company Number: US-PFIZER INC-2014034808

PATIENT
  Age: 63 Year
  Sex: Male
  Weight: 113 kg

DRUGS (3)
  1. PRISTIQ [Suspect]
     Indication: DEPRESSION
     Dosage: 50 MG, DAILY IN THE MORNING
     Dates: start: 201401
  2. DICLOFENAC [Concomitant]
     Indication: ARTHRITIS
     Dosage: UNK
  3. DICLOFENAC [Concomitant]
     Indication: BACK PAIN

REACTIONS (3)
  - Paraesthesia [Unknown]
  - Hypoaesthesia [Unknown]
  - Irritability [Unknown]
